FAERS Safety Report 15581755 (Version 4)
Quarter: 2018Q4

REPORT INFORMATION
  Report Type: Report from Study
  Country: GB (occurrence: GB)
  Receive Date: 20181105
  Receipt Date: 20181126
  Transmission Date: 20190205
  Serious: Yes (Other)
  Sender: FDA-Public Use
  Company Number: GB-IPSEN BIOPHARMACEUTICALS, INC.-2018-02729

PATIENT
  Age: 80 Year
  Sex: Female

DRUGS (1)
  1. SOMATULINE AUTOGEL 60MG [Suspect]
     Active Substance: LANREOTIDE ACETATE
     Indication: NEUROENDOCRINE TUMOUR
     Dosage: 60 MG
     Route: 058

REACTIONS (9)
  - Abdominal pain [Not Recovered/Not Resolved]
  - Abdominal distension [Not Recovered/Not Resolved]
  - Flushing [Unknown]
  - Chills [Unknown]
  - Neoplasm progression [Unknown]
  - Dizziness [Unknown]
  - Depressed mood [Unknown]
  - Tunnel vision [Unknown]
  - Retching [Unknown]

NARRATIVE: CASE EVENT DATE: 20180926
